FAERS Safety Report 5291009-7 (Version None)
Quarter: 2007Q2

REPORT INFORMATION
  Report Type: 
  Country: None (occurrence: None)
  Receive Date: 20070409
  Receipt Date: 20070327
  Transmission Date: 20071010
  Serious: Yes (Life-Threatening, Other)
  Sender: FDA-Public Use
  Company Number: BR-ELI_LILLY_AND_COMPANY-BR200703006061

PATIENT
  Age: 90 Year
  Sex: Male

DRUGS (1)
  1. CIALIS [Suspect]
     Dosage: 20 MG, DAILY (1/D)
     Route: 048

REACTIONS (4)
  - CONVULSION [None]
  - EYE MOVEMENT DISORDER [None]
  - SENSORY DISTURBANCE [None]
  - TREMOR [None]
